FAERS Safety Report 13947624 (Version 1)
Quarter: 2017Q3

REPORT INFORMATION
  Report Type: Report from Study
  Country: CO (occurrence: CO)
  Receive Date: 20170908
  Receipt Date: 20170908
  Transmission Date: 20171128
  Serious: Yes (Other)
  Sender: FDA-Public Use
  Company Number: CO-EMD SERONO-E2B_80080694

PATIENT
  Sex: Male

DRUGS (2)
  1. SAIZEN [Suspect]
     Active Substance: SOMATROPIN
     Dosage: 1.66 (UNSPECIFIED UNITS)
     Route: 058
     Dates: start: 20170818
  2. SAIZEN [Suspect]
     Active Substance: SOMATROPIN
     Indication: GROWTH HORMONE DEFICIENCY
     Dosage: 1.66 (UNSPECIFIED UNITS)
     Route: 058
     Dates: start: 20121231

REACTIONS (1)
  - Bladder disorder [Recovered/Resolved]
